FAERS Safety Report 7528115-X (Version None)
Quarter: 2011Q2

REPORT INFORMATION
  Report Type: 
  Country: None (occurrence: None)
  Receive Date: 20110607
  Receipt Date: 20110523
  Transmission Date: 20111010
  Serious: No
  Sender: FDA-Public Use
  Company Number: US-B.I. PHARMACEUTICALS,INC./RIDGEFIELD-2011-BP-10015BP

PATIENT
  Age: 55 Year
  Sex: Female
  Weight: 95.7 kg

DRUGS (1)
  1. PRADAXA [Suspect]
     Indication: ATRIAL FIBRILLATION
     Dosage: 300 MG
     Dates: start: 20110325, end: 20110404

REACTIONS (3)
  - FATIGUE [None]
  - MYALGIA [None]
  - MUSCULAR WEAKNESS [None]
